FAERS Safety Report 24101818 (Version 1)
Quarter: 2024Q3

REPORT INFORMATION
  Report Type: Spontaneous
  Country: US (occurrence: US)
  Receive Date: 20240717
  Receipt Date: 20240717
  Transmission Date: 20241016
  Serious: Yes (Other)
  Sender: AUROBINDO
  Company Number: US-AUROBINDO-AUR-APL-2024-034692

PATIENT
  Age: 50 Year
  Sex: Female

DRUGS (2)
  1. ISOPROTERENOL HYDROCHLORIDE [Suspect]
     Active Substance: ISOPROTERENOL HYDROCHLORIDE
     Indication: Atrial standstill
     Dosage: UNK
     Route: 042
  2. EPINEPHRINE [Concomitant]
     Active Substance: EPINEPHRINE
     Indication: Bradycardia
     Dosage: UNK
     Route: 042

REACTIONS (2)
  - Atrial fibrillation [Unknown]
  - Sinus tachycardia [Unknown]
